FAERS Safety Report 6717014-9 (Version None)
Quarter: 2010Q2

REPORT INFORMATION
  Report Type: 
  Country: None (occurrence: None)
  Receive Date: 20100506
  Receipt Date: 20100506
  Transmission Date: 20101027
  Serious: No
  Sender: FDA-Public Use
  Company Number: None

PATIENT
  Age: 71 Year
  Sex: Female
  Weight: 70.3075 kg

DRUGS (1)
  1. ACTONEL [Suspect]
     Indication: OSTEOPOROSIS
     Dosage: 150 MG ONCE A MONTH
     Dates: start: 20100210

REACTIONS (6)
  - ARTHRALGIA [None]
  - BACK PAIN [None]
  - BODY TEMPERATURE INCREASED [None]
  - IMPAIRED WORK ABILITY [None]
  - OCULAR HYPERAEMIA [None]
  - VISION BLURRED [None]
